FAERS Safety Report 4548003-0 (Version None)
Quarter: 2004Q4

REPORT INFORMATION
  Report Type: 
  Country: None (occurrence: None)
  Receive Date: 20041227
  Receipt Date: 20040921
  Transmission Date: 20050328
  Serious: No
  Sender: FDA-Public Use
  Company Number: 04P-163-0274006-00

PATIENT
  Age: 68 Year
  Sex: Female
  Weight: 51.7101 kg

DRUGS (9)
  1. HUMIRA [Suspect]
     Indication: RHEUMATOID ARTHRITIS
     Dosage: 40 MG, SUBCUTANEOUS
     Route: 058
     Dates: start: 20040511, end: 20040708
  2. HYDROCHLOROTHIAZIDE [Concomitant]
  3. LOVASTATIN [Concomitant]
  4. IRBESARTAN [Concomitant]
  5. DIGOXIN [Concomitant]
  6. CLONIDINE [Concomitant]
  7. AMLODIPINE BESYLATE [Concomitant]
  8. FOLIC ACID [Concomitant]
  9. CALCIUM CITRATE [Concomitant]

REACTIONS (2)
  - ABDOMINAL TENDERNESS [None]
  - BACK PAIN [None]
